FAERS Safety Report 17057210 (Version 5)
Quarter: 2020Q1

REPORT INFORMATION
  Report Type: Report from Study
  Country: US (occurrence: US)
  Receive Date: 20191121
  Receipt Date: 20200224
  Transmission Date: 20200409
  Serious: Yes (Other)
  Sender: FDA-Public Use
  Company Number: US-BIOGEN-2019BI00808977

PATIENT
  Age: 64 Year
  Sex: Female

DRUGS (4)
  1. TECFIDERA [Suspect]
     Active Substance: DIMETHYL FUMARATE
     Route: 065
     Dates: start: 20191017
  2. TECFIDERA [Suspect]
     Active Substance: DIMETHYL FUMARATE
     Route: 065
     Dates: start: 20160105, end: 2017
  3. ASPIRIN. [Concomitant]
     Active Substance: ASPIRIN
     Indication: PRODUCT USED FOR UNKNOWN INDICATION
     Route: 065
  4. TECFIDERA [Suspect]
     Active Substance: DIMETHYL FUMARATE
     Indication: MULTIPLE SCLEROSIS
     Dosage: MAINTENANCE DOSE
     Route: 048

REACTIONS (6)
  - Product dose omission [Recovered/Resolved]
  - Memory impairment [Not Recovered/Not Resolved]
  - Psychogenic seizure [Not Recovered/Not Resolved]
  - Therapeutic response unexpected [Unknown]
  - Aphasia [Not Recovered/Not Resolved]
  - Loss of visual contrast sensitivity [Not Recovered/Not Resolved]

NARRATIVE: CASE EVENT DATE: 201909
